FAERS Safety Report 4721793-X (Version None)
Quarter: 2005Q3

REPORT INFORMATION
  Report Type: 
  Country: None (occurrence: None)
  Receive Date: 20050721
  Receipt Date: 20050418
  Transmission Date: 20060218
  Serious: No
  Sender: FDA-Public Use
  Company Number: US-BRISTOL-MYERS SQUIBB COMPANY-12937165

PATIENT
  Age: 75 Year
  Sex: Male
  Weight: 86 kg

DRUGS (3)
  1. COUMADIN [Suspect]
     Indication: ATRIAL FIBRILLATION
     Dosage: ONE 2.5 MILLIGRAM TABLET ON TUES, THURS / HALF A 2.5 MILLIGRAM TABLET ON MON, WED, FRI, SAT AND SUN
     Dates: start: 20030101
  2. ZOCOR [Concomitant]
  3. ALTACE [Concomitant]

REACTIONS (1)
  - RASH MACULAR [None]
